FAERS Safety Report 24655188 (Version 1)
Quarter: 2024Q4

REPORT INFORMATION
  Report Type: Spontaneous
  Country: ES (occurrence: ES)
  Receive Date: 20241123
  Receipt Date: 20241123
  Transmission Date: 20250114
  Serious: Yes (Other)
  Sender: ALEXION PHARMACEUTICALS
  Company Number: None

PATIENT
  Age: 65 Year

DRUGS (4)
  1. TEZSPIRE [Suspect]
     Active Substance: TEZEPELUMAB-EKKO
     Indication: Asthma
     Dosage: 210 MG CADA 4 SEMANAS
  2. TEZSPIRE [Suspect]
     Active Substance: TEZEPELUMAB-EKKO
     Dosage: 210 MG CADA 4 SEMANAS
  3. TEZSPIRE [Suspect]
     Active Substance: TEZEPELUMAB-EKKO
     Dosage: 210 MG CADA 4 SEMANAS
  4. TEZSPIRE [Suspect]
     Active Substance: TEZEPELUMAB-EKKO
     Dosage: 210 MG CADA 4 SEMANAS

REACTIONS (1)
  - Granuloma skin [Recovering/Resolving]
